FAERS Safety Report 23509292 (Version 1)
Quarter: 2024Q1

REPORT INFORMATION
  Report Type: Spontaneous
  Country: US (occurrence: US)
  Receive Date: 20240210
  Receipt Date: 20240210
  Transmission Date: 20240410
  Serious: Yes (Life-Threatening, Other)
  Sender: FDA-Public Use
  Company Number: US-JNJFOC-20240206595

PATIENT

DRUGS (2)
  1. IMBRUVICA [Suspect]
     Active Substance: IBRUTINIB
     Indication: Waldenstrom^s macroglobulinaemia
     Dosage: IN 4 WEEKLY CYCLE.
     Route: 048
  2. IXAZOMIB [Suspect]
     Active Substance: IXAZOMIB
     Indication: Waldenstrom^s macroglobulinaemia
     Dosage: ON DAYS 1, 8 AND 15
     Route: 048

REACTIONS (35)
  - Hyponatraemia [Unknown]
  - Headache [Unknown]
  - Lymphocyte count decreased [Unknown]
  - Diarrhoea [Unknown]
  - Arthralgia [Unknown]
  - Pain in extremity [Unknown]
  - Fatigue [Unknown]
  - Aspiration [Unknown]
  - Bone pain [Unknown]
  - Upper respiratory tract infection [Unknown]
  - Oedema peripheral [Unknown]
  - Small intestinal obstruction [Unknown]
  - Hypertension [Unknown]
  - Hypersensitivity [Unknown]
  - Abdominal pain [Unknown]
  - Angina pectoris [Unknown]
  - Anaemia [Unknown]
  - Pyrexia [Unknown]
  - Hypoalbuminaemia [Unknown]
  - Pneumonia [Unknown]
  - Platelet count decreased [Unknown]
  - Leukocytosis [Unknown]
  - Peripheral sensory neuropathy [Unknown]
  - Dyspnoea [Unknown]
  - Nausea [Unknown]
  - Muscular weakness [Unknown]
  - Peripheral motor neuropathy [Unknown]
  - Neutrophil count decreased [Unknown]
  - Cardiac failure [Unknown]
  - Vomiting [Unknown]
  - White blood cell count decreased [Unknown]
  - Confusional state [Unknown]
  - Syncope [Unknown]
  - Haematuria [Unknown]
  - Hypoxia [Unknown]
